FAERS Safety Report 21081015 (Version 1)
Quarter: 2022Q3

REPORT INFORMATION
  Report Type: Spontaneous
  Country: US (occurrence: None)
  Receive Date: 20220713
  Receipt Date: 20220713
  Transmission Date: 20221026
  Serious: No
  Sender: FDA-Public Use
  Company Number: None

PATIENT
  Sex: Female

DRUGS (1)
  1. HUMIRA [Suspect]
     Active Substance: ADALIMUMAB
     Indication: Psoriasis
     Dosage: OTHER FREQUENCY : ON1DAYANDONDAY;?
     Route: 042
     Dates: start: 20220607

REACTIONS (5)
  - Migraine [None]
  - Dizziness [None]
  - Tremor [None]
  - Dyskinesia [None]
  - Thinking abnormal [None]
